FAERS Safety Report 9457280 (Version 1)
Quarter: 2013Q3

REPORT INFORMATION
  Report Type: Report from Study
  Country: VE (occurrence: VE)
  Receive Date: 20130814
  Receipt Date: 20130814
  Transmission Date: 20140515
  Serious: Yes (Hospitalization)
  Sender: FDA-Public Use
  Company Number: PHHY2013VE083180

PATIENT
  Age: 15 Year
  Sex: Female

DRUGS (11)
  1. EXJADE [Suspect]
     Indication: IRON OVERLOAD
     Dosage: 500 MG, TWICE PER DAY
     Route: 048
  2. EXJADE [Suspect]
     Dosage: 1000 MG, DAILY
     Route: 048
     Dates: end: 201304
  3. EXJADE [Suspect]
     Dosage: 1000 MG, DAILY
     Route: 048
     Dates: start: 201305
  4. HYDREA [Concomitant]
     Indication: SICKLE CELL ANAEMIA
     Dosage: 1000 MG, DAILY
     Route: 048
  5. VITAMIIN C [Concomitant]
     Indication: SICKLE CELL ANAEMIA
     Dosage: UNK UKN, DAILY
     Route: 048
  6. VITAMIN E [Concomitant]
     Indication: SICKLE CELL ANAEMIA
     Dosage: UNK UKN, DAILY
     Route: 048
  7. ZINC [Concomitant]
     Indication: SICKLE CELL ANAEMIA
     Dosage: UNK UKN, DAILY
     Route: 048
  8. POTASSIUM NITRATE [Concomitant]
     Indication: SICKLE CELL ANAEMIA
     Dosage: UNK UKN, DAILY
     Route: 048
  9. BENUTREX                           /00086501/ [Concomitant]
     Indication: SICKLE CELL ANAEMIA
     Dosage: UNK UKN, DAILY
     Route: 048
  10. FOLIC ACID [Concomitant]
     Indication: SICKLE CELL ANAEMIA
     Dosage: 10 MG, DAILY
     Route: 048
  11. BLOOD TRANSFUSION, AUXILIARY PRODUCTS [Concomitant]
     Indication: SICKLE CELL ANAEMIA
     Dosage: UNK UKN, MONTHLY
     Route: 042

REACTIONS (5)
  - Osteonecrosis [Recovered/Resolved]
  - Pain in extremity [Recovering/Resolving]
  - Viral infection [Recovered/Resolved]
  - Vomiting [Recovered/Resolved]
  - Diarrhoea [Recovered/Resolved]
